FAERS Safety Report 9004697 (Version 1)
Quarter: 2013Q1

REPORT INFORMATION
  Report Type: Spontaneous
  Country: US (occurrence: None)
  Receive Date: 20130103
  Receipt Date: 20130103
  Transmission Date: 20140127
  Serious: Yes (Hospitalization, Other)
  Sender: FDA-Public Use
  Company Number: None

PATIENT
  Sex: Female
  Weight: 105 kg

DRUGS (1)
  1. BRENTUXIMAB VEDOTIN [Suspect]

REACTIONS (15)
  - Pneumocystis jirovecii pneumonia [None]
  - Hypoxia [None]
  - Tachypnoea [None]
  - Tachycardia [None]
  - Pruritus generalised [None]
  - Flushing [None]
  - Infusion related reaction [None]
  - Urticaria [None]
  - Chills [None]
  - Erythema [None]
  - Erythema [None]
  - Dyspnoea [None]
  - Chills [None]
  - Urticaria [None]
  - Rash [None]
